FAERS Safety Report 14099726 (Version 5)
Quarter: 2018Q4

REPORT INFORMATION
  Report Type: Report from Study
  Country: None (occurrence: BR)
  Receive Date: 20171017
  Receipt Date: 20181029
  Transmission Date: 20190204
  Serious: Yes (Hospitalization, Disabling, Other)
  Sender: FDA-Public Use
  Company Number: BR-ABBVIE-17K-020-2131602-00

PATIENT
  Age: 44 Year
  Sex: Female
  Weight: 85 kg

DRUGS (22)
  1. HUMIRA [Suspect]
     Active Substance: ADALIMUMAB
     Route: 058
     Dates: start: 2017
  2. AMITRIPTYLINE [Suspect]
     Active Substance: AMITRIPTYLINE
     Indication: MUSCLE RELAXANT THERAPY
  3. MORPHINE [Concomitant]
     Active Substance: MORPHINE
     Indication: ARTHRALGIA
  4. PANTOPRAZOLE [Concomitant]
     Active Substance: PANTOPRAZOLE
     Indication: GASTRIC DISORDER
  5. CODEINE [Suspect]
     Active Substance: CODEINE
     Indication: ARTHRALGIA
     Route: 065
  6. METHOTREXATE. [Concomitant]
     Active Substance: METHOTREXATE
     Indication: ANKYLOSING SPONDYLITIS
  7. AMITRIPTYLINE [Suspect]
     Active Substance: AMITRIPTYLINE
     Indication: DEPRESSION
     Dosage: 2 OR 3 TABLETS PER DAY
     Route: 065
     Dates: start: 201708, end: 201708
  8. BESEROL (CAFFEINE\CARISOPRODOL\PARACETAMOL\DICLOFENAC SODIUM) [Suspect]
     Active Substance: ACETAMINOPHEN\CAFFEINE\CARISOPRODOL\DICLOFENAC SODIUM
     Indication: PRODUCT USED FOR UNKNOWN INDICATION
     Route: 065
  9. HUMIRA [Suspect]
     Active Substance: ADALIMUMAB
     Indication: ANKYLOSING SPONDYLITIS
     Route: 058
     Dates: start: 20160419, end: 2017
  10. ALGINAC [Suspect]
     Active Substance: CYANOCOBALAMIN\DICLOFENAC SODIUM\PYRIDOXINE HYDROCHLORIDE\THIAMINE MONONITRATE
     Indication: PRODUCT USED FOR UNKNOWN INDICATION
     Route: 065
  11. CORTISONE [Concomitant]
     Active Substance: CORTISONE\HYDROCORTISONE
     Indication: PAIN
     Route: 065
     Dates: start: 2013
  12. CITONEURIN [Concomitant]
     Active Substance: CYANOCOBALAMIN\PYRIDOXINE HYDROCHLORIDE\THIAMINE
     Indication: PRODUCT USED FOR UNKNOWN INDICATION
  13. RIVOTRIL [Concomitant]
     Active Substance: CLONAZEPAM
     Indication: MUSCLE RELAXANT THERAPY
  14. CORTISONE [Concomitant]
     Active Substance: CORTISONE\HYDROCORTISONE
     Indication: DISCOMFORT
  15. CORTISONE [Suspect]
     Active Substance: CORTISONE\HYDROCORTISONE
     Indication: PRODUCT USED FOR UNKNOWN INDICATION
     Route: 065
  16. TRAMADOL. [Concomitant]
     Active Substance: TRAMADOL
     Indication: PAIN
  17. RIVOTRIL [Concomitant]
     Active Substance: CLONAZEPAM
     Indication: INSOMNIA
  18. VELIJA [Concomitant]
     Active Substance: DULOXETINE HYDROCHLORIDE
     Indication: PAIN
  19. PANTOPRAZOLE [Concomitant]
     Active Substance: PANTOPRAZOLE
     Indication: PROPHYLAXIS
  20. PREGABALIN. [Suspect]
     Active Substance: PREGABALIN
     Indication: ANKYLOSING SPONDYLITIS
     Route: 065
  21. PREBICTAL [Concomitant]
     Active Substance: PREGABALIN
     Indication: PRODUCT USED FOR UNKNOWN INDICATION
     Dates: start: 2016
  22. VELIJA [Concomitant]
     Active Substance: DULOXETINE HYDROCHLORIDE
     Indication: DEPRESSION
     Dates: start: 2016

REACTIONS (53)
  - Dysstasia [Unknown]
  - Osteosclerosis [Not Recovered/Not Resolved]
  - Intervertebral disc degeneration [Unknown]
  - Uveitis [Unknown]
  - Lordosis [Unknown]
  - Haemangioma of bone [Not Recovered/Not Resolved]
  - Cyst [Unknown]
  - Osteosclerosis [Unknown]
  - Spinal muscular atrophy [Unknown]
  - Acne [Unknown]
  - Weight increased [Recovering/Resolving]
  - Pneumonia [Unknown]
  - Arthropathy [Unknown]
  - Dislocation of vertebra [Not Recovered/Not Resolved]
  - Cardiac disorder [Unknown]
  - Tendon disorder [Not Recovered/Not Resolved]
  - Ankylosing spondylitis [Unknown]
  - Hospitalisation [Unknown]
  - Bruxism [Not Recovered/Not Resolved]
  - Intervertebral disc disorder [Not Recovered/Not Resolved]
  - Intervertebral disc protrusion [Unknown]
  - Intervertebral disc disorder [Unknown]
  - Hypophagia [Unknown]
  - Influenza [Not Recovered/Not Resolved]
  - Arthralgia [Unknown]
  - Amnesia [Not Recovered/Not Resolved]
  - Cervical radiculopathy [Not Recovered/Not Resolved]
  - Tendonitis [Not Recovered/Not Resolved]
  - Weight decreased [Not Recovered/Not Resolved]
  - Spinal deformity [Unknown]
  - Spinal fusion acquired [Not Recovered/Not Resolved]
  - Osteoarthritis [Recovered/Resolved]
  - Lumbar radiculopathy [Not Recovered/Not Resolved]
  - Vertebral osteophyte [Unknown]
  - Atrophy [Recovering/Resolving]
  - Depression [Not Recovered/Not Resolved]
  - Tooth fracture [Not Recovered/Not Resolved]
  - Arthropathy [Unknown]
  - Nail psoriasis [Unknown]
  - Pain [Unknown]
  - Rash macular [Not Recovered/Not Resolved]
  - Hypoaesthesia [Not Recovered/Not Resolved]
  - Anaemia [Recovered/Resolved]
  - Osteoarthritis [Unknown]
  - Movement disorder [Unknown]
  - Mobility decreased [Unknown]
  - Menopause [Unknown]
  - Gait disturbance [Recovering/Resolving]
  - Immunodeficiency [Unknown]
  - Bone marrow oedema [Unknown]
  - Neuroma [Unknown]
  - Cortisol abnormal [Recovered/Resolved]
  - Visual impairment [Not Recovered/Not Resolved]

NARRATIVE: CASE EVENT DATE: 2016
